FAERS Safety Report 18600403 (Version 1)
Quarter: 2020Q4

REPORT INFORMATION
  Report Type: Spontaneous
  Country: SE (occurrence: SE)
  Receive Date: 20201210
  Receipt Date: 20201210
  Transmission Date: 20210114
  Serious: Yes (Death)
  Sender: FDA-Public Use
  Company Number: SE-PFIZER INC-2020486709

PATIENT
  Age: 60 Year
  Sex: Male

DRUGS (15)
  1. CANDESARTAN CILEXETIL. [Concomitant]
     Active Substance: CANDESARTAN CILEXETIL
     Dosage: 8 MG, DAILY
  2. FURIX [FUROSEMIDE] [Concomitant]
     Active Substance: FUROSEMIDE
     Dosage: 80 MG, DAILY
  3. TROMBYL [Concomitant]
     Active Substance: ASPIRIN
     Dosage: 75 MG, DAILY
  4. OMEPRAZOLE. [Concomitant]
     Active Substance: OMEPRAZOLE
     Dosage: 1 UNK, DAILY
  5. ATORVASTATIN CALCIUM. [Suspect]
     Active Substance: ATORVASTATIN CALCIUM
     Dosage: 20 MG, DAILY
     Dates: start: 20200423, end: 20200911
  6. ABASAGLAR [Concomitant]
     Active Substance: INSULIN GLARGINE
     Dosage: 20+20 U
  7. URSOFALK [Concomitant]
     Active Substance: URSODIOL
     Dosage: 3 UNK, DAILY
  8. OXYCONTIN [Concomitant]
     Active Substance: OXYCODONE HYDROCHLORIDE
     Dosage: UNK UNK, AS NEEDED
  9. PLAVIX [Concomitant]
     Active Substance: CLOPIDOGREL BISULFATE
     Dosage: 1 UNK, DAILY
  10. OZEMPIC [Concomitant]
     Active Substance: SEMAGLUTIDE
     Dosage: 1 MG, WEEKLY
  11. ZOLPIDEM [Concomitant]
     Active Substance: ZOLPIDEM TARTRATE
     Dosage: UNK, AS NEEDED
  12. PENTASA [Concomitant]
     Active Substance: MESALAMINE
     Dosage: 2 G, DAILY
  13. ALVEDON FORTE [Concomitant]
     Active Substance: ACETAMINOPHEN
     Dosage: UNK, AS NEEDED
  14. NOVORAPID [Concomitant]
     Active Substance: INSULIN ASPART
     Dosage: 10+10 U
  15. BISOPROLOL [Concomitant]
     Active Substance: BISOPROLOL
     Dosage: 10 MG, DAILY

REACTIONS (2)
  - Multiple organ dysfunction syndrome [Fatal]
  - Myopathy [Fatal]

NARRATIVE: CASE EVENT DATE: 20200911
